FAERS Safety Report 24892681 (Version 2)
Quarter: 2025Q2

REPORT INFORMATION
  Report Type: Spontaneous
  Country: IN (occurrence: IN)
  Receive Date: 20250128
  Receipt Date: 20250605
  Transmission Date: 20250716
  Serious: Yes (Hospitalization, Other)
  Sender: SOLARIS PHARMA CORPORATION
  Company Number: IN-SPC-000554

PATIENT
  Age: 31 Year
  Sex: Male

DRUGS (2)
  1. METRONIDAZOLE [Suspect]
     Active Substance: METRONIDAZOLE
     Indication: Liver abscess
     Route: 042
  2. METRONIDAZOLE [Suspect]
     Active Substance: METRONIDAZOLE
     Indication: Liver abscess
     Route: 048

REACTIONS (6)
  - Anosognosia [Recovering/Resolving]
  - Product use in unapproved indication [Unknown]
  - Agitation [Unknown]
  - Irritability [Recovering/Resolving]
  - Blindness cortical [Recovering/Resolving]
  - Toxicity to various agents [Unknown]
